FAERS Safety Report 18390630 (Version 4)
Quarter: 2021Q1

REPORT INFORMATION
  Report Type: Report from Study
  Country: US (occurrence: US)
  Receive Date: 20201015
  Receipt Date: 20210217
  Transmission Date: 20210419
  Serious: Yes (Hospitalization)
  Sender: FDA-Public Use
  Company Number: US-PFIZER INC-2020393986

PATIENT
  Age: 53 Year
  Sex: Female
  Weight: 69.5 kg

DRUGS (15)
  1. ZIAC [Concomitant]
     Active Substance: BISOPROLOL FUMARATE\HYDROCHLOROTHIAZIDE
     Dosage: UNK
     Dates: start: 1998
  2. ATIVAN [Concomitant]
     Active Substance: LORAZEPAM
     Dosage: UNK
     Dates: start: 2018
  3. ZEN?003694. [Suspect]
     Active Substance: ZEN-003694
     Indication: TRIPLE NEGATIVE BREAST CANCER
     Dosage: 48 MG, DAILY
     Route: 048
     Dates: start: 20200901, end: 20200921
  4. ZOLOFT [Concomitant]
     Active Substance: SERTRALINE HYDROCHLORIDE
     Dosage: UNK
     Dates: start: 2004
  5. TALAZOPARIB. [Suspect]
     Active Substance: TALAZOPARIB
     Indication: TRIPLE NEGATIVE BREAST CANCER
     Dosage: 0.75 MG, 1X/DAY
     Route: 048
     Dates: start: 20200901, end: 20200921
  6. CELEBREX [Concomitant]
     Active Substance: CELECOXIB
     Dosage: UNK
     Dates: start: 2019
  7. MELATONIN [Concomitant]
     Active Substance: MELATONIN
     Dosage: UNK
     Dates: start: 2019
  8. GAS?X [Concomitant]
     Active Substance: DIMETHICONE
     Dosage: UNK
     Dates: start: 202006
  9. FLONASE [Concomitant]
     Active Substance: FLUTICASONE PROPIONATE
     Dosage: UNK
     Dates: start: 20200827
  10. TYLENOL [Concomitant]
     Active Substance: ACETAMINOPHEN
     Dosage: UNK
     Dates: start: 1967
  11. NEURONTIN [Concomitant]
     Active Substance: GABAPENTIN
     Dosage: UNK
     Dates: start: 202005
  12. PREVACID [Concomitant]
     Active Substance: LANSOPRAZOLE
     Dosage: UNK
     Dates: start: 202007
  13. SYNTHROID [Concomitant]
     Active Substance: LEVOTHYROXINE SODIUM
     Dosage: UNK
     Dates: start: 2007
  14. MORPHINE [Concomitant]
     Active Substance: MORPHINE
     Dosage: UNK
     Dates: start: 2019
  15. CLARITIN REDITABS [Concomitant]
     Active Substance: LORATADINE
     Dosage: UNK
     Dates: start: 2018

REACTIONS (1)
  - Dyspnoea [Recovered/Resolved with Sequelae]

NARRATIVE: CASE EVENT DATE: 20200929
